FAERS Safety Report 10978892 (Version 2)
Quarter: 2015Q2

REPORT INFORMATION
  Report Type: Spontaneous
  Country: JP (occurrence: JP)
  Receive Date: 20150402
  Receipt Date: 20150416
  Transmission Date: 20150821
  Serious: Yes (Other)
  Sender: FDA-Public Use
  Company Number: JP-SA-2015SA041444

PATIENT
  Age: 75 Year
  Sex: Male

DRUGS (1)
  1. PLAVIX [Suspect]
     Active Substance: CLOPIDOGREL BISULFATE
     Route: 048
     Dates: start: 201212, end: 201302

REACTIONS (2)
  - Motor dysfunction [Unknown]
  - Cerebral haemorrhage [Unknown]
